FAERS Safety Report 4796865-4 (Version None)
Quarter: 2005Q4

REPORT INFORMATION
  Report Type: 
  Country: None (occurrence: None)
  Receive Date: 20051011
  Receipt Date: 20051011
  Transmission Date: 20060501
  Serious: Yes (Other)
  Sender: FDA-Public Use
  Company Number: None

PATIENT
  Age: 39 Year
  Sex: Female
  Weight: 71.2147 kg

DRUGS (1)
  1. CIPRO [Suspect]
     Indication: CYSTITIS
     Dosage: ONCE A DAY
     Dates: start: 20050905, end: 20050907

REACTIONS (3)
  - GASTROOESOPHAGEAL REFLUX DISEASE [None]
  - HYPERSENSITIVITY [None]
  - PHARYNGEAL OEDEMA [None]
